FAERS Safety Report 12197103 (Version 9)
Quarter: 2018Q3

REPORT INFORMATION
  Report Type: Report from Study
  Country: US (occurrence: US)
  Receive Date: 20160321
  Receipt Date: 20180716
  Transmission Date: 20181010
  Serious: Yes (Hospitalization, Other)
  Sender: FDA-Public Use
  Company Number: US-ACTELION-A-NJ2016-131948

PATIENT
  Age: 49 Year
  Sex: Female

DRUGS (14)
  1. OPSUMIT [Suspect]
     Active Substance: MACITENTAN
     Indication: PORTOPULMONARY HYPERTENSION
     Dosage: 10 MG, QD
     Route: 048
     Dates: start: 20160127
  2. CITALOPRAM [Concomitant]
     Active Substance: CITALOPRAM HYDROBROMIDE
  3. OXYCODONE [Concomitant]
     Active Substance: OXYCODONE
  4. VELETRI [Suspect]
     Active Substance: EPOPROSTENOL
     Indication: PORTOPULMONARY HYPERTENSION
     Dosage: 17 NG/KG, PER MIN
     Route: 042
     Dates: start: 20150924
  5. NEXIUM [Concomitant]
     Active Substance: ESOMEPRAZOLE MAGNESIUM
  6. TRENTAL [Concomitant]
     Active Substance: PENTOXIFYLLINE
  7. ZOFRAN [Concomitant]
     Active Substance: ONDANSETRON HYDROCHLORIDE
  8. VELETRI [Suspect]
     Active Substance: EPOPROSTENOL
     Dosage: 18 NG/KG, PER MIN
     Route: 042
     Dates: start: 20150924
  9. MUCINEX [Concomitant]
     Active Substance: GUAIFENESIN
  10. XIFAXAN [Concomitant]
     Active Substance: RIFAXIMIN
  11. CEFTRIAXONE. [Concomitant]
     Active Substance: CEFTRIAXONE
  12. DIAZEPAM. [Concomitant]
     Active Substance: DIAZEPAM
  13. SILDENAFIL. [Concomitant]
     Active Substance: SILDENAFIL
  14. MIDODRINE [Concomitant]
     Active Substance: MIDODRINE

REACTIONS (40)
  - Pleural effusion [Recovered/Resolved with Sequelae]
  - Bacteraemia [Recovered/Resolved]
  - Diarrhoea [Recovered/Resolved]
  - Staphylococcal infection [Recovered/Resolved]
  - Acute kidney injury [Unknown]
  - Electrocardiogram abnormal [Recovering/Resolving]
  - Infection [Recovered/Resolved]
  - Pyrexia [Recovered/Resolved]
  - Vomiting [Recovered/Resolved]
  - Oedema peripheral [Recovering/Resolving]
  - Urinary tract infection [Unknown]
  - Right ventricular hypertrophy [Recovering/Resolving]
  - Catheter site erythema [Recovered/Resolved]
  - Catheter site discharge [Recovered/Resolved]
  - Migraine [Unknown]
  - Pain in jaw [Unknown]
  - Dyspnoea [Recovered/Resolved with Sequelae]
  - Weight increased [Recovered/Resolved with Sequelae]
  - Complication associated with device [Recovered/Resolved]
  - Asthenia [Recovered/Resolved]
  - Nausea [Recovered/Resolved]
  - Ascites [Recovered/Resolved]
  - Waist circumference increased [Recovered/Resolved]
  - Abdominal distension [Recovered/Resolved with Sequelae]
  - Pulmonary congestion [Recovered/Resolved]
  - Cough [Recovered/Resolved]
  - Wound infection [Recovered/Resolved]
  - Chest pain [Recovered/Resolved]
  - Fluid retention [Recovering/Resolving]
  - Dysuria [Unknown]
  - Oxygen saturation decreased [Recovered/Resolved with Sequelae]
  - Cold sweat [Recovered/Resolved]
  - Culture positive [Recovered/Resolved]
  - Blood culture positive [Recovered/Resolved]
  - Hypokalaemia [Recovered/Resolved]
  - Condition aggravated [Not Recovered/Not Resolved]
  - Aspiration pleural cavity [Unknown]
  - Fatigue [Recovered/Resolved]
  - Abdominal cavity drainage [Recovered/Resolved]
  - Staphylococcus test positive [Recovered/Resolved]

NARRATIVE: CASE EVENT DATE: 201602
